FAERS Safety Report 26109682 (Version 2)
Quarter: 2025Q4

REPORT INFORMATION
  Report Type: Spontaneous
  Country: EU (occurrence: EU)
  Receive Date: 20251201
  Receipt Date: 20251215
  Transmission Date: 20260118
  Serious: Yes (Hospitalization, Other)
  Sender: MYLAN
  Company Number: None

PATIENT
  Age: 35 Year
  Sex: Female
  Weight: 54 kg

DRUGS (8)
  1. METHYLPHENIDATE [Suspect]
     Active Substance: METHYLPHENIDATE
     Indication: Product used for unknown indication
     Dosage: 360 MILLIGRAM
  2. METHYLPHENIDATE [Suspect]
     Active Substance: METHYLPHENIDATE
     Dosage: 360 MILLIGRAM
     Route: 065
  3. METHYLPHENIDATE [Suspect]
     Active Substance: METHYLPHENIDATE
     Dosage: 360 MILLIGRAM
     Route: 065
  4. METHYLPHENIDATE [Suspect]
     Active Substance: METHYLPHENIDATE
     Dosage: 360 MILLIGRAM
  5. TRAMADOL [Suspect]
     Active Substance: TRAMADOL
     Indication: Product used for unknown indication
     Dosage: 1000 MILLIGRAM, QD (1000MG/D)
  6. TRAMADOL [Suspect]
     Active Substance: TRAMADOL
     Dosage: 1000 MILLIGRAM, QD (1000MG/D)
     Route: 065
  7. TRAMADOL [Suspect]
     Active Substance: TRAMADOL
     Dosage: 1000 MILLIGRAM, QD (1000MG/D)
     Route: 065
  8. TRAMADOL [Suspect]
     Active Substance: TRAMADOL
     Dosage: 1000 MILLIGRAM, QD (1000MG/D)

REACTIONS (5)
  - Delusional disorder, persecutory type [Recovering/Resolving]
  - Substance dependence [Recovering/Resolving]
  - Decreased appetite [Recovering/Resolving]
  - Intentional product misuse [Recovering/Resolving]
  - Overdose [Unknown]
